FAERS Safety Report 9150756 (Version 1)
Quarter: 2013Q1

REPORT INFORMATION
  Report Type: Spontaneous
  Country: US (occurrence: None)
  Receive Date: 20130201
  Receipt Date: 20130201
  Transmission Date: 20140127
  Serious: Yes (Other)
  Sender: FDA-Public Use
  Company Number: DKLU1088497

PATIENT
  Age: 28 Year
  Sex: Female

DRUGS (1)
  1. ONFI [Suspect]
     Indication: GRAND MAL CONVULSION
     Route: 048
     Dates: start: 201211

REACTIONS (3)
  - Convulsion [None]
  - Condition aggravated [None]
  - Status epilepticus [None]
